FAERS Safety Report 4694095-8 (Version None)
Quarter: 2005Q2

REPORT INFORMATION
  Report Type: 
  Country: None (occurrence: None)
  Receive Date: 20050617
  Receipt Date: 20050603
  Transmission Date: 20051028
  Serious: Yes (Death)
  Sender: FDA-Public Use
  Company Number: 2005S1002463

PATIENT
  Age: 52 Year
  Sex: Female

DRUGS (7)
  1. CLOZAPINE [Suspect]
     Indication: SCHIZOAFFECTIVE DISORDER
     Dosage: 300 MG; QD; PO
     Route: 048
     Dates: end: 20050101
  2. OXYGEN [Concomitant]
  3. TRAZODONE [Concomitant]
  4. VENLAFAXINE HCL [Concomitant]
  5. HYDROCHLORIDE [Concomitant]
  6. OXCARBAZEPINE [Concomitant]
  7. MIRTAZAPINE [Concomitant]

REACTIONS (1)
  - DEATH [None]
